FAERS Safety Report 8451913-5 (Version None)
Quarter: 2012Q2

REPORT INFORMATION
  Report Type: 
  Country: None (occurrence: None)
  Receive Date: 20120620
  Receipt Date: 20120416
  Transmission Date: 20120825
  Serious: No
  Sender: FDA-Public Use
  Company Number: US-VERTEX PHARMACEUTICALS INC.-AE-2012-004288

PATIENT
  Sex: Female
  Weight: 42.676 kg

DRUGS (9)
  1. PEGASYS [Concomitant]
     Indication: HEPATITIS C
     Route: 058
     Dates: start: 20120323, end: 20120406
  2. INCIVEK [Suspect]
     Indication: HEPATITIS C
     Route: 048
     Dates: start: 20120323, end: 20120413
  3. MOTRIN [Concomitant]
     Indication: PAIN
     Route: 048
  4. RIBAVIRIN [Concomitant]
     Indication: HEPATITIS C
     Route: 048
     Dates: start: 20120323, end: 20120413
  5. PROPRANOLOL [Concomitant]
     Indication: CARDIAC DISORDER
     Route: 048
  6. WELLBUTRIN XL [Concomitant]
     Route: 048
  7. IBUPROFEN [Concomitant]
     Indication: DISCOMFORT
     Route: 048
  8. XANAX [Concomitant]
     Indication: ANXIETY
     Route: 048
  9. ASTHAMATIC MEDS [Concomitant]
     Indication: ASTHMA

REACTIONS (6)
  - PAIN IN EXTREMITY [None]
  - BACK PAIN [None]
  - PRURITUS [None]
  - HYPERTENSION [None]
  - TOOTH DISORDER [None]
  - FATIGUE [None]
